FAERS Safety Report 5113893-X (Version None)
Quarter: 2006Q3

REPORT INFORMATION
  Report Type: 
  Country: None (occurrence: None)
  Receive Date: 20060921
  Receipt Date: 20060831
  Transmission Date: 20061208
  Serious: Yes (Hospitalization)
  Sender: FDA-Public Use
  Company Number: 2006S1000169

PATIENT
  Age: 48 Year
  Sex: Male
  Weight: 91.7 kg

DRUGS (7)
  1. CUBICIN [Suspect]
     Indication: POSTOPERATIVE WOUND INFECTION
     Dosage: IV
     Route: 042
     Dates: start: 20060827, end: 20060828
  2. SIMVASTATIN [Concomitant]
  3. EFFEXOR [Concomitant]
  4. DEPAKOTE [Concomitant]
  5. CLARITIN [Concomitant]
  6. ACIPHEX [Concomitant]
  7. VANCOMYCIN [Concomitant]

REACTIONS (2)
  - ERYTHEMA MULTIFORME [None]
  - ORAL MUCOSAL BLISTERING [None]
